FAERS Safety Report 9828701 (Version 1)
Quarter: 2014Q1

REPORT INFORMATION
  Report Type: Spontaneous
  Country: US (occurrence: US)
  Receive Date: 20140117
  Receipt Date: 20140117
  Transmission Date: 20141002
  Serious: No
  Sender: FDA-Public Use
  Company Number: US-GILEAD-2014-0092293

PATIENT
  Sex: Male

DRUGS (2)
  1. STRIBILD [Suspect]
     Indication: PRODUCT USED FOR UNKNOWN INDICATION
     Dosage: UNK
     Route: 065
  2. STRIBILD [Suspect]
     Dosage: UNK
     Route: 065
     Dates: start: 20140110

REACTIONS (1)
  - Muscle twitching [Unknown]
